FAERS Safety Report 6753059-0 (Version None)
Quarter: 2010Q2

REPORT INFORMATION
  Report Type: 
  Country: None (occurrence: None)
  Receive Date: 20100602
  Receipt Date: 20100602
  Transmission Date: 20101027
  Serious: Yes (Other)
  Sender: FDA-Public Use
  Company Number: None

PATIENT
  Sex: Female
  Weight: 77.1115 kg

DRUGS (3)
  1. SEROQUEL [Suspect]
     Dosage: 100MG HS
     Route: 048
     Dates: start: 20060101, end: 20100101
  2. LEXAPRO [Concomitant]
  3. AMBIEN [Concomitant]

REACTIONS (2)
  - RESTLESS LEGS SYNDROME [None]
  - SLEEP DISORDER [None]
